FAERS Safety Report 23355641 (Version 1)
Quarter: 2024Q1

REPORT INFORMATION
  Report Type: Spontaneous
  Country: US (occurrence: US)
  Receive Date: 20240102
  Receipt Date: 20240102
  Transmission Date: 20240410
  Serious: No
  Sender: FDA-Public Use
  Company Number: US-APOTEX-2023AP005238

PATIENT
  Sex: Male

DRUGS (2)
  1. BUTORPHANOL TARTRATE [Suspect]
     Active Substance: BUTORPHANOL TARTRATE
     Indication: Arthralgia
     Dosage: 2 DOSAGE FORM, QD AS NEEDED
     Route: 045
     Dates: start: 202303
  2. BUTORPHANOL TARTRATE [Suspect]
     Active Substance: BUTORPHANOL TARTRATE
     Indication: Pain

REACTIONS (5)
  - Product packaging quantity issue [Unknown]
  - Product dose omission issue [Unknown]
  - Device defective [Unknown]
  - Inappropriate schedule of product administration [Unknown]
  - No adverse event [Unknown]

NARRATIVE: CASE EVENT DATE: 20230301
